FAERS Safety Report 20119315 (Version 1)
Quarter: 2021Q4

REPORT INFORMATION
  Report Type: Spontaneous
  Country: BR (occurrence: None)
  Receive Date: 20211126
  Receipt Date: 20211126
  Transmission Date: 20220303
  Serious: Yes (Other)
  Sender: FDA-Public Use
  Company Number: 2021A824702

PATIENT
  Age: 29960 Day
  Sex: Female
  Weight: 51 kg

DRUGS (2)
  1. IMFINZI [Suspect]
     Active Substance: DURVALUMAB
     Indication: Lung carcinoma cell type unspecified stage 0
     Dosage: 510MG/ML DAILY
     Route: 042
     Dates: start: 20211117
  2. NEOVIT [Concomitant]
     Route: 065

REACTIONS (6)
  - Blood pressure decreased [Recovered/Resolved]
  - Chills [Recovered/Resolved]
  - Tremor [Recovered/Resolved]
  - Body temperature abnormal [Recovered/Resolved]
  - Oxygen saturation abnormal [Recovered/Resolved]
  - Dyspnoea [Recovered/Resolved]

NARRATIVE: CASE EVENT DATE: 20211117
